FAERS Safety Report 4758850-8 (Version None)
Quarter: 2005Q3

REPORT INFORMATION
  Report Type: 
  Country: None (occurrence: None)
  Receive Date: 20050831
  Receipt Date: 20050815
  Transmission Date: 20060218
  Serious: Yes (Other)
  Sender: FDA-Public Use
  Company Number: TRP_0325_2005

PATIENT
  Age: 50 Year
  Sex: Female
  Weight: 94.8018 kg

DRUGS (6)
  1. RIBASPHERE [Suspect]
     Indication: HEPATITIS C
     Dosage: 1000 MG QDAY PO
     Route: 048
     Dates: start: 20050803, end: 20050804
  2. PEGASYS [Suspect]
     Indication: HEPATITIS C
     Dosage: 180 MCG QWK SC
     Route: 058
     Dates: start: 20050803, end: 20050804
  3. ATIVAN [Suspect]
     Dates: start: 20050804, end: 20050804
  4. ATIVAN [Suspect]
     Indication: ANXIETY
     Dosage: 1 MG QDAY PO
     Route: 048
     Dates: start: 20050728
  5. PHENERGAN [Concomitant]
  6. LIPITOR [Concomitant]

REACTIONS (3)
  - INTENTIONAL MISUSE [None]
  - OVERDOSE [None]
  - SUICIDE ATTEMPT [None]
